FAERS Safety Report 10399516 (Version 1)
Quarter: 2014Q3

REPORT INFORMATION
  Report Type: Spontaneous
  Country: US (occurrence: None)
  Receive Date: 20140818
  Receipt Date: 20140818
  Transmission Date: 20150326
  Serious: Yes (Life-Threatening, Other)
  Sender: FDA-Public Use
  Company Number: None

PATIENT
  Age: 36 Year
  Sex: Female
  Weight: 122.47 kg

DRUGS (1)
  1. VESTURA [Suspect]
     Active Substance: DROSPIRENONE\ETHINYL ESTRADIOL
     Indication: CONTRACEPTION
     Dosage: 1 PILL ONCE DAILY TAKEN BY MOUTH
     Route: 048
     Dates: start: 20130915, end: 20140516

REACTIONS (6)
  - Peripheral swelling [None]
  - Oedema peripheral [None]
  - Thrombophlebitis superficial [None]
  - Joint swelling [None]
  - Pain in extremity [None]
  - Pulmonary embolism [None]

NARRATIVE: CASE EVENT DATE: 20140509
